FAERS Safety Report 10590631 (Version 10)
Quarter: 2015Q2

REPORT INFORMATION
  Report Type: Spontaneous
  Country: JP (occurrence: JP)
  Receive Date: 20141118
  Receipt Date: 20150608
  Transmission Date: 20150821
  Serious: Yes (Other)
  Sender: FDA-Public Use
  Company Number: JP-PFIZER INC-2014312546

PATIENT
  Age: 4 Decade
  Sex: Male

DRUGS (15)
  1. GASTER [Suspect]
     Active Substance: FAMOTIDINE
     Dosage: UNK
  2. LOPEMIN [Concomitant]
     Active Substance: LOPERAMIDE HYDROCHLORIDE
     Dosage: UNK
  3. ZYPREXA [Concomitant]
     Active Substance: OLANZAPINE
     Dosage: UNK
  4. LACTOMIN [Concomitant]
     Active Substance: LACTOBACILLUS ACIDOPHILUS
     Dosage: UNK
  5. GRANDAXIN [Concomitant]
     Active Substance: TOFISOPAM
     Dosage: UNK
  6. LIPITOR [Suspect]
     Active Substance: ATORVASTATIN CALCIUM
     Dosage: 10 MG, 1X/DAY
  7. IRRIBOW [Suspect]
     Active Substance: RAMOSETRON HYDROCHLORIDE
     Dosage: 5 ?G, 1X/DAY
     Route: 048
  8. URSO [Concomitant]
     Active Substance: URSODIOL
     Dosage: UNK
     Route: 048
  9. EXCELASE [Concomitant]
     Active Substance: PANCRELIPASE
     Dosage: UNK
  10. IRRIBOW [Suspect]
     Active Substance: RAMOSETRON HYDROCHLORIDE
     Dosage: 10 ?G, UNK
     Route: 048
  11. SILECE [Concomitant]
     Active Substance: FLUNITRAZEPAM
     Dosage: UNK
  12. VEGETAMIN B [Concomitant]
     Active Substance: CHLORPROMAZINE HYDROCHLORIDE\PHENOBARBITAL\PROMETHAZINE
     Dosage: UNK
  13. FLOKISYL [Concomitant]
     Dosage: UNK
  14. LEXOTAN [Concomitant]
     Active Substance: BROMAZEPAM
     Dosage: UNK
  15. BIOFERMIN [Concomitant]
     Active Substance: BACILLUS SUBTILIS\LACTOBACILLUS ACIDOPHILUS\STREPTOCOCCUS FAECAIS
     Dosage: UNK

REACTIONS (27)
  - Dizziness [Unknown]
  - Abdominal pain [Recovered/Resolved]
  - Constipation [Unknown]
  - Blood cholesterol increased [Unknown]
  - Fall [Unknown]
  - Contusion [Not Recovered/Not Resolved]
  - Nausea [Unknown]
  - Mucous stools [Not Recovered/Not Resolved]
  - Limb injury [Unknown]
  - Facial pain [Unknown]
  - Abdominal pain [Unknown]
  - Diarrhoea [Unknown]
  - Blood triglycerides increased [Unknown]
  - Blood alkaline phosphatase increased [Unknown]
  - Road traffic accident [Unknown]
  - Gait disturbance [Not Recovered/Not Resolved]
  - Faeces soft [Recovered/Resolved]
  - Diarrhoea [Recovered/Resolved]
  - Faeces soft [Unknown]
  - Intentional product misuse [Unknown]
  - Headache [Not Recovered/Not Resolved]
  - Excoriation [Unknown]
  - Dizziness [Unknown]
  - Gamma-glutamyltransferase increased [Unknown]
  - Enteritis infectious [Unknown]
  - Polyuria [Unknown]
  - Abdominal pain upper [Unknown]

NARRATIVE: CASE EVENT DATE: 201409
